FAERS Safety Report 12663262 (Version 1)
Quarter: 2016Q3

REPORT INFORMATION
  Report Type: Spontaneous
  Country: US (occurrence: None)
  Receive Date: 20160817
  Receipt Date: 20160817
  Transmission Date: 20161109
  Serious: Yes (Disabling, Other)
  Sender: FDA-Public Use
  Company Number: None

PATIENT
  Age: 76 Year
  Sex: Female
  Weight: 44 kg

DRUGS (5)
  1. FIBER WELL GUMMIES [Concomitant]
  2. PROLIA [Suspect]
     Active Substance: DENOSUMAB
     Indication: OSTEOPOROSIS
     Route: 030
     Dates: start: 20160607, end: 20160607
  3. SPECTRAVITE MULTIPLE VITAMINS [Concomitant]
  4. VITAMIN CODE RAW CALCIUM FROM ALGAE [Concomitant]
  5. OMEGA-3 FISH OIL [Concomitant]
     Active Substance: FISH OIL\OMEGA-3 FATTY ACIDS

REACTIONS (5)
  - Neck pain [None]
  - Arthralgia [None]
  - Dizziness [None]
  - Tooth disorder [None]
  - Chromaturia [None]

NARRATIVE: CASE EVENT DATE: 20160607
